FAERS Safety Report 8355290-X (Version None)
Quarter: 2012Q2

REPORT INFORMATION
  Report Type: 
  Country: None (occurrence: None)
  Receive Date: 20120511
  Receipt Date: 20120430
  Transmission Date: 20120825
  Serious: Yes (Hospitalization)
  Sender: FDA-Public Use
  Company Number: JP-ELI_LILLY_AND_COMPANY-JP201106006662

PATIENT
  Age: 86 Year
  Sex: Female

DRUGS (1)
  1. FORTEO [Suspect]
     Dosage: UNK
     Route: 058
     Dates: start: 20110415

REACTIONS (4)
  - HOSPITALISATION [None]
  - DIARRHOEA [None]
  - OEDEMA PERIPHERAL [None]
  - MEDICATION ERROR [None]
